FAERS Safety Report 14982736 (Version 1)
Quarter: 2018Q2

REPORT INFORMATION
  Report Type: Spontaneous
  Country: US (occurrence: US)
  Receive Date: 20180515
  Receipt Date: 20180515
  Transmission Date: 20180711
  Serious: Yes (Disabling, Other)
  Sender: FDA-Public Use
  Company Number: None

PATIENT
  Age: 55 Year
  Sex: Male
  Weight: 92.99 kg

DRUGS (8)
  1. VITAMIN C [Concomitant]
     Active Substance: ASCORBIC ACID
  2. CIPROFLOXACIN HCL 500MG TAB [Suspect]
     Active Substance: CIPROFLOXACIN
     Indication: CYSTOSCOPY
     Dosage: ?          QUANTITY:6 DF DOSAGE FORM;?
     Route: 048
     Dates: start: 201507, end: 20170910
  3. OSTEO-BI-FLEX [Concomitant]
  4. POTASSIUM [Concomitant]
     Active Substance: POTASSIUM
  5. TRAMADOL. [Concomitant]
     Active Substance: TRAMADOL
  6. MELATONIN [Concomitant]
     Active Substance: MELATONIN
  7. CIPROFLOXACIN HCL 500MG TAB [Suspect]
     Active Substance: CIPROFLOXACIN
     Indication: INFECTION PROPHYLAXIS
     Dosage: ?          QUANTITY:6 DF DOSAGE FORM;?
     Route: 048
     Dates: start: 201507, end: 20170910
  8. ONE A DAY MEN^S [Concomitant]
     Active Substance: VITAMINS

REACTIONS (15)
  - Paranoia [None]
  - Pain [None]
  - Pain in extremity [None]
  - Tendon rupture [None]
  - Restlessness [None]
  - Nervous system disorder [None]
  - Depression [None]
  - Gait disturbance [None]
  - Hallucination [None]
  - Confusional state [None]
  - Anxiety [None]
  - Dysstasia [None]
  - Insomnia [None]
  - Suicidal ideation [None]
  - Myalgia [None]

NARRATIVE: CASE EVENT DATE: 20161020
